FAERS Safety Report 5292024-X (Version None)
Quarter: 2007Q2

REPORT INFORMATION
  Report Type: 
  Country: None (occurrence: None)
  Receive Date: 20070410
  Receipt Date: 20070404
  Transmission Date: 20071010
  Serious: Yes (Hospitalization)
  Sender: FDA-Public Use
  Company Number: CH-JNJFOC-20070400435

PATIENT
  Age: 37 Year
  Sex: Female
  Weight: 59 kg

DRUGS (3)
  1. TYLENOL [Suspect]
     Route: 048
  2. TYLENOL [Suspect]
     Indication: ACUTE SINUSITIS
     Route: 048
  3. RHINOPRONT [Concomitant]
     Indication: ACUTE SINUSITIS
     Route: 048

REACTIONS (3)
  - DRUG EXPOSURE DURING PREGNANCY [None]
  - HEPATIC FUNCTION ABNORMAL [None]
  - HEPATOCELLULAR DAMAGE [None]
